FAERS Safety Report 9915657 (Version 1)
Quarter: 2014Q1

REPORT INFORMATION
  Report Type: Spontaneous
  Country: DK (occurrence: DK)
  Receive Date: 20140221
  Receipt Date: 20140221
  Transmission Date: 20141002
  Serious: Yes (Hospitalization)
  Sender: FDA-Public Use
  Company Number: DK-ACCORD-021894

PATIENT
  Age: 70 Year
  Sex: Male

DRUGS (4)
  1. FLUOROURACIL [Suspect]
     Indication: RECTAL CANCER METASTATIC
  2. IRINOTECAN [Suspect]
     Indication: RECTAL CANCER METASTATIC
  3. BEVACIZUMAB [Suspect]
     Indication: RECTAL CANCER METASTATIC
  4. FOLINIC ACID [Suspect]
     Indication: RECTAL CANCER METASTATIC

REACTIONS (2)
  - Sepsis [Recovered/Resolved]
  - Perineal fistula [Recovered/Resolved]
